FAERS Safety Report 23951584 (Version 3)
Quarter: 2024Q3

REPORT INFORMATION
  Report Type: Spontaneous
  Country: US (occurrence: US)
  Receive Date: 20240607
  Receipt Date: 20240904
  Transmission Date: 20241016
  Serious: No
  Sender: PFIZER
  Company Number: US-PFIZER INC-PV202400074696

PATIENT
  Age: 34 Year
  Sex: Female

DRUGS (2)
  1. LITFULO [Suspect]
     Active Substance: RITLECITINIB TOSYLATE
     Dosage: 50 MG
     Route: 048
     Dates: start: 20240122
  2. LITFULO [Suspect]
     Active Substance: RITLECITINIB TOSYLATE
     Dosage: UNK
     Route: 048

REACTIONS (6)
  - Dizziness [Recovered/Resolved]
  - Stomatitis [Recovered/Resolved]
  - Blood cholesterol increased [Unknown]
  - COVID-19 [Not Recovered/Not Resolved]
  - Weight increased [Unknown]
  - Respiratory disorder [Unknown]

NARRATIVE: CASE EVENT DATE: 20240101
